FAERS Safety Report 6430115-8 (Version None)
Quarter: 2009Q4

REPORT INFORMATION
  Report Type: 
  Country: None (occurrence: None)
  Receive Date: 20091103
  Receipt Date: 20091027
  Transmission Date: 20100525
  Serious: Yes (Death)
  Sender: FDA-Public Use
  Company Number: 2009SP033090

PATIENT
  Age: 51 Year
  Sex: Male

DRUGS (2)
  1. REMERON [Suspect]
     Dosage: 15 MG; QD; PO 30 MG; QD; PO
     Route: 048
     Dates: start: 20090909, end: 20090924
  2. REMERON [Suspect]
     Dosage: 15 MG; QD; PO 30 MG; QD; PO
     Route: 048
     Dates: start: 20090925, end: 20090929

REACTIONS (2)
  - EXTRADURAL HAEMATOMA [None]
  - POST PROCEDURAL HAEMORRHAGE [None]
